FAERS Safety Report 7071518-0 (Version None)
Quarter: 2010Q4

REPORT INFORMATION
  Report Type: 
  Country: None (occurrence: None)
  Receive Date: 20101029
  Receipt Date: 20091027
  Transmission Date: 20110411
  Serious: No
  Sender: FDA-Public Use
  Company Number: A0807668A

PATIENT
  Sex: Male

DRUGS (6)
  1. ADVAIR DISKUS 100/50 [Suspect]
     Indication: ASTHMA
     Dosage: 1PUFF TWICE PER DAY
     Route: 055
     Dates: start: 20000101
  2. ALEVE (CAPLET) [Concomitant]
  3. ASPIRIN [Concomitant]
  4. PAROXETINE HCL [Concomitant]
  5. RANITIDINE [Concomitant]
  6. BENADRYL [Concomitant]

REACTIONS (1)
  - CANDIDIASIS [None]
